FAERS Safety Report 6185989-5 (Version None)
Quarter: 2009Q2

REPORT INFORMATION
  Report Type: 
  Country: None (occurrence: None)
  Receive Date: 20090511
  Receipt Date: 20090129
  Transmission Date: 20091009
  Serious: Yes (Other)
  Sender: FDA-Public Use
  Company Number: AU-PFIZER INC-2009163768

PATIENT
  Age: 43 Year

DRUGS (2)
  1. SOLU-CORTEF [Suspect]
  2. LYRICA [Suspect]

REACTIONS (3)
  - DRUG INEFFECTIVE [None]
  - PARAESTHESIA [None]
  - SYNCOPE [None]
